FAERS Safety Report 12777448 (Version 2)
Quarter: 2017Q3

REPORT INFORMATION
  Report Type: Spontaneous
  Country: US (occurrence: US)
  Receive Date: 20160924
  Receipt Date: 20170920
  Transmission Date: 20171127
  Serious: No
  Sender: FDA-Public Use
  Company Number: US-TEVA-680050USA

PATIENT
  Sex: Male
  Weight: 83.54 kg

DRUGS (1)
  1. CARBAMAZEPINE. [Suspect]
     Active Substance: CARBAMAZEPINE
     Indication: FACIAL NEURALGIA
     Dosage: 800 MILLIGRAM DAILY;
     Route: 048
     Dates: start: 2012

REACTIONS (4)
  - Drug ineffective [Recovered/Resolved]
  - Gingival pain [Unknown]
  - Dizziness [Unknown]
  - Feeding disorder [Unknown]

NARRATIVE: CASE EVENT DATE: 2012
